FAERS Safety Report 10262370 (Version 1)
Quarter: 2014Q2

REPORT INFORMATION
  Report Type: Spontaneous
  Country: BR (occurrence: BR)
  Receive Date: 20140626
  Receipt Date: 20140626
  Transmission Date: 20141212
  Serious: Yes (Hospitalization)
  Sender: FDA-Public Use
  Company Number: BR-PFIZER INC-2014174166

PATIENT
  Age: 66 Year
  Sex: Female
  Weight: 65 kg

DRUGS (8)
  1. CELEBRA [Suspect]
     Dosage: 200 MG (1 CAPSULE), TWICE A DAY
     Route: 048
     Dates: start: 20140223
  2. LYRICA [Suspect]
     Dosage: 75 MG (1 CAPSULE), DAILY
     Route: 048
  3. ATENOLOL [Concomitant]
     Indication: BLOOD PRESSURE MANAGEMENT
     Dosage: 50 MG, TWICE A DAY
     Dates: start: 2006
  4. CALCIUM + VIT D [Concomitant]
     Indication: MINERAL SUPPLEMENTATION
     Dosage: 1 DF, DAILY
     Dates: start: 201403
  5. HIGROTON [Concomitant]
     Indication: BLOOD PRESSURE MANAGEMENT
     Dosage: 50 MG, DAILY
     Dates: start: 2006
  6. PRESSAT [Concomitant]
     Indication: BLOOD PRESSURE MANAGEMENT
     Dosage: 5 MG, DAILY
     Dates: start: 2006
  7. TYLEX [Concomitant]
     Indication: POSTOPERATIVE CARE
     Dosage: 30 MG EACH 12 HOURS
  8. TRAMADOL [Concomitant]
     Indication: PAIN
     Dosage: 1 DF (1 TABLET OR CAPSULE), TWICE A DAY (EACH 12 HOURS)
     Dates: start: 201311

REACTIONS (1)
  - Intervertebral disc disorder [Unknown]
